FAERS Safety Report 23265385 (Version 1)
Quarter: 2023Q4

REPORT INFORMATION
  Report Type: Report from Study
  Country: CA (occurrence: CA)
  Receive Date: 20231206
  Receipt Date: 20231206
  Transmission Date: 20240110
  Serious: Yes (Other)
  Sender: FDA-Public Use
  Company Number: CA-SANDOZ-SDZ2023CA061748

PATIENT
  Sex: Female

DRUGS (1)
  1. HYRIMOZ [Suspect]
     Active Substance: ADALIMUMAB-ADAZ
     Indication: Crohn^s disease
     Dosage: 40 MG, BIW
     Route: 058
     Dates: start: 20220130

REACTIONS (6)
  - Pyoderma gangrenosum [Unknown]
  - Intestinal fistula [Unknown]
  - Erythema nodosum [Unknown]
  - Anal fissure [Unknown]
  - Aphthous ulcer [Unknown]
  - Arthralgia [Unknown]
